FAERS Safety Report 21564575 (Version 4)
Quarter: 2022Q4

REPORT INFORMATION
  Report Type: Report from Study
  Country: US (occurrence: US)
  Receive Date: 20221108
  Receipt Date: 20221212
  Transmission Date: 20230113
  Serious: Yes (Hospitalization)
  Sender: FDA-Public Use
  Company Number: US-002147023-NVSC2022US250986

PATIENT
  Age: 69 Year
  Sex: Female

DRUGS (3)
  1. PIQRAY [Suspect]
     Active Substance: ALPELISIB
     Indication: Product used for unknown indication
     Dosage: 300 MG (25 OCT)
     Route: 048
     Dates: start: 20221025
  2. PIQRAY [Suspect]
     Active Substance: ALPELISIB
     Dosage: UNK
     Route: 065
  3. PIQRAY [Suspect]
     Active Substance: ALPELISIB
     Dosage: 200 MG
     Route: 065

REACTIONS (7)
  - Urinary incontinence [Unknown]
  - Loss of consciousness [Unknown]
  - Blood glucose increased [Unknown]
  - Rash [Unknown]
  - Pyrexia [Unknown]
  - Asthenia [Unknown]
  - Diarrhoea [Unknown]
